FAERS Safety Report 14297037 (Version 3)
Quarter: 2018Q1

REPORT INFORMATION
  Report Type: Spontaneous
  Country: JP (occurrence: JP)
  Receive Date: 20171218
  Receipt Date: 20180228
  Transmission Date: 20180509
  Serious: Yes (Death, Other)
  Sender: FDA-Public Use
  Company Number: JP-GLAXOSMITHKLINE-JP2017JPN192838

PATIENT
  Age: 9 Decade
  Sex: Female

DRUGS (21)
  1. MEPOLIZUMAB [Suspect]
     Active Substance: MEPOLIZUMAB
     Indication: ASTHMA
     Dosage: 100 MG, UNK
     Route: 058
     Dates: start: 20171005, end: 20171109
  2. RELVAR ELLIPTA [Concomitant]
     Active Substance: FLUTICASONE FUROATE\VILANTEROL TRIFENATATE
     Dosage: 200 ?G, QD
     Route: 055
     Dates: start: 20171111
  3. SOLANTAL TABLETS [Concomitant]
     Dosage: 100 MG, TID
  4. NEXIUM CAPSULE [Concomitant]
     Dosage: 20 MG, QD
  5. MITIGLINIDE CALCIUM HYDRATE [Concomitant]
     Active Substance: MITIGLINIDE CALCIUM HYDRATE
     Dosage: 10 MG, TID
  6. GLACTIV [Concomitant]
     Active Substance: SITAGLIPTIN
     Dosage: 50 MG, QD
  7. XYZAL [Concomitant]
     Active Substance: LEVOCETIRIZINE DIHYDROCHLORIDE
     Dosage: 5 MG, BID
     Route: 048
     Dates: start: 20110715
  8. AMBROXOL HYDROCHLORIDE OD [Concomitant]
     Dosage: 45 MG, QD
  9. NICORANDIL TABLET [Concomitant]
     Dosage: 10 MG, BID
  10. PRANLUKAST TABLET [Concomitant]
     Dosage: 225 MG, BID
  11. UNIPHYL LA [Concomitant]
     Active Substance: THEOPHYLLINE ANHYDROUS
     Dosage: UNK, BID
  12. CLARITHROMYCIN TABLETS [Concomitant]
     Active Substance: CLARITHROMYCIN
     Dosage: 200 MG, QD
  13. VESICARE OD TABLETS [Concomitant]
     Dosage: 2.5 MG, QD
  14. BROTIZOLAM [Concomitant]
     Active Substance: BROTIZOLAM
     Dosage: 0.25 MG, QD
  15. SPIRONOLACTONE TABLETS [Concomitant]
     Active Substance: SPIRONOLACTONE
     Dosage: 25 MG, QD
  16. EDIROL CAPSULE [Concomitant]
     Dosage: 0.75 ?G, QD
  17. FUROSEMIDE TABLETS [Concomitant]
     Active Substance: FUROSEMIDE
     Dosage: 20 MG, QD
  18. PREDONINE [Concomitant]
     Active Substance: PREDNISOLONE
     Indication: ASTHMA
     Dosage: UNK
  19. BENIDIPINE HYDROCHLORIDE [Concomitant]
     Active Substance: BENIDIPINE HYDROCHLORIDE
     Dosage: 4 MG, QD
  20. MOSAPRIDE CITRATE TABLETS [Concomitant]
     Active Substance: MOSAPRIDE CITRATE
     Dosage: 5 MG, TID
  21. ALENDRONATE TABLETS [Concomitant]
     Dosage: 35 MG, WE

REACTIONS (11)
  - Pulmonary alveolar haemorrhage [Fatal]
  - Bacteraemia [Recovering/Resolving]
  - Cardiac failure [Fatal]
  - Weight increased [Unknown]
  - Haemoptysis [Unknown]
  - Cellulitis [Recovering/Resolving]
  - Respiratory failure [Unknown]
  - Pyrexia [Recovering/Resolving]
  - Asthma [Unknown]
  - Dyspnoea [Unknown]
  - Hypoaesthesia [Unknown]

NARRATIVE: CASE EVENT DATE: 20171011
